FAERS Safety Report 17345484 (Version 7)
Quarter: 2020Q1

REPORT INFORMATION
  Report Type: Report from Study
  Country: JP (occurrence: JP)
  Receive Date: 20200129
  Receipt Date: 20200225
  Transmission Date: 20200409
  Serious: Yes (Hospitalization)
  Sender: FDA-Public Use
  Company Number: JP-EISAI MEDICAL RESEARCH-EC-2020-069152

PATIENT
  Age: 71 Year
  Sex: Female
  Weight: 51 kg

DRUGS (13)
  1. ZOLPIDEM TARTRATE. [Concomitant]
     Active Substance: ZOLPIDEM TARTRATE
     Dates: start: 20091119, end: 20200120
  2. TSUKUSHI AM (NEW FORMULA) [Concomitant]
     Dates: start: 20091119, end: 20200120
  3. TRIMEBUTINE MALEATE [Concomitant]
     Active Substance: TRIMEBUTINE MALEATE
     Dates: start: 20200115, end: 20200120
  4. MYSLEE [Concomitant]
     Active Substance: ZOLPIDEM TARTRATE
     Dates: start: 20200121, end: 20200127
  5. PEMBROLIZUMAB. [Suspect]
     Active Substance: PEMBROLIZUMAB
     Indication: ENDOMETRIAL CANCER
     Route: 041
     Dates: start: 20200122, end: 20200122
  6. ATORVASTATIN [Concomitant]
     Active Substance: ATORVASTATIN
     Dates: start: 20060702
  7. MAGNESIUM OXIDE. [Concomitant]
     Active Substance: MAGNESIUM OXIDE
     Dates: start: 201901
  8. LENVATINIB [Suspect]
     Active Substance: LENVATINIB
     Route: 048
     Dates: start: 20200213
  9. SELAPINA [Concomitant]
     Dates: start: 20200107, end: 20200116
  10. SM POWDER [Concomitant]
     Active Substance: HERBALS
     Dates: start: 20200121, end: 20200127
  11. LENVATINIB [Suspect]
     Active Substance: LENVATINIB
     Indication: ENDOMETRIAL CANCER
     Route: 048
     Dates: start: 20200122, end: 20200203
  12. CEFZON [Concomitant]
     Active Substance: CEFDINIR
     Dates: start: 20200110, end: 20200113
  13. PEMBROLIZUMAB. [Suspect]
     Active Substance: PEMBROLIZUMAB
     Route: 041
     Dates: start: 20200213

REACTIONS (1)
  - Hypertension [Recovered/Resolved]

NARRATIVE: CASE EVENT DATE: 20200122
